FAERS Safety Report 6464756-9 (Version None)
Quarter: 2009Q4

REPORT INFORMATION
  Report Type: 
  Country: None (occurrence: None)
  Receive Date: 20091201
  Receipt Date: 20090223
  Transmission Date: 20100525
  Serious: No
  Sender: FDA-Public Use
  Company Number: US-AMGEN-COG335378

PATIENT
  Sex: Male

DRUGS (2)
  1. ENBREL [Suspect]
     Indication: PSORIASIS
     Route: 058
     Dates: start: 20050901
  2. PREDNISONE [Concomitant]

REACTIONS (5)
  - BONE PAIN [None]
  - EAR DISORDER [None]
  - NASOPHARYNGITIS [None]
  - PSORIASIS [None]
  - PYREXIA [None]
